FAERS Safety Report 4659898-4 (Version None)
Quarter: 2005Q2

REPORT INFORMATION
  Report Type: 
  Country: None (occurrence: None)
  Receive Date: 20050510
  Receipt Date: 20041229
  Transmission Date: 20051028
  Serious: Yes (Hospitalization)
  Sender: FDA-Public Use
  Company Number: PAR_0031_2005

PATIENT
  Age: 94 Year
  Sex: Female

DRUGS (11)
  1. ISOPTINE LP [Suspect]
     Dosage: 240 MG ONCE PO
     Route: 048
     Dates: start: 20040818, end: 20040818
  2. DIGOXIN [Suspect]
     Dosage: 1 DF QDAY PO
     Route: 048
     Dates: end: 20040818
  3. DONEPEZIL HCL [Suspect]
     Dosage: 8 MG ONCE PO
     Route: 048
     Dates: start: 20040818, end: 20040818
  4. FUROSEMIDE [Concomitant]
  5. ENALAPRIL MALEATE [Concomitant]
  6. ALDACTAZINE [Concomitant]
  7. CAPTOPRIL [Concomitant]
  8. MOLSIDOMINE [Concomitant]
  9. HYDROXYZINE HYDROCHLORIDE [Concomitant]
  10. OMEPRAZOLE [Concomitant]
  11. ZOLPIDEM [Concomitant]

REACTIONS (10)
  - ATRIOVENTRICULAR BLOCK COMPLETE [None]
  - ATRIOVENTRICULAR BLOCK FIRST DEGREE [None]
  - ATRIOVENTRICULAR BLOCK SECOND DEGREE [None]
  - CARDIOACTIVE DRUG LEVEL INCREASED [None]
  - DRUG ADMINISTRATION ERROR [None]
  - HEART RATE INCREASED [None]
  - HYPONATRAEMIA [None]
  - HYPOTENSION [None]
  - MALAISE [None]
  - RENAL FAILURE [None]
